FAERS Safety Report 16838836 (Version 1)
Quarter: 2019Q4

REPORT INFORMATION
  Report Type: Spontaneous
  Country: AF (occurrence: AF)
  Receive Date: 20190920
  Receipt Date: 20190920
  Transmission Date: 20200122
  Serious: Yes (Other)
  Sender: FDA-Public Use
  Company Number: None

PATIENT
  Age: 62 Year
  Sex: Male
  Weight: 100.35 kg

DRUGS (8)
  1. CAPECITABINE. [Suspect]
     Active Substance: CAPECITABINE
     Indication: HEPATIC CANCER
     Route: 048
     Dates: start: 20190731
  2. HYDOCHLOROTHIAZIDE [Concomitant]
  3. AMLODIPINE [Concomitant]
     Active Substance: AMLODIPINE BESYLATE
  4. TEMOZOLOMIDE. [Suspect]
     Active Substance: TEMOZOLOMIDE
     Indication: HEPATIC CANCER
     Route: 048
     Dates: start: 20190731
  5. ATENOLOL. [Concomitant]
     Active Substance: ATENOLOL
  6. TRADJENTA [Concomitant]
     Active Substance: LINAGLIPTIN
  7. LISINOPRIL. [Concomitant]
     Active Substance: LISINOPRIL
  8. ZOFRAN [Concomitant]
     Active Substance: ONDANSETRON HYDROCHLORIDE

REACTIONS (4)
  - Asthenia [None]
  - Disturbance in attention [None]
  - Vomiting [None]
  - Swelling [None]

NARRATIVE: CASE EVENT DATE: 20190920
